FAERS Safety Report 7907038-8 (Version None)
Quarter: 2011Q4

REPORT INFORMATION
  Report Type: 
  Country: None (occurrence: None)
  Receive Date: 20111110
  Receipt Date: 20111104
  Transmission Date: 20120403
  Serious: Yes (Hospitalization)
  Sender: FDA-Public Use
  Company Number: US-ABBOTT-11P-163-0871869-00

PATIENT
  Sex: Female
  Weight: 72.64 kg

DRUGS (7)
  1. HUMIRA [Suspect]
     Indication: CROHN'S DISEASE
     Dates: start: 20110810, end: 20110810
  2. ENTOCORT EC [Concomitant]
     Indication: CROHN'S DISEASE
  3. HUMIRA [Suspect]
     Dates: start: 20110824, end: 20110824
  4. PHENERGAN [Concomitant]
     Indication: NAUSEA
  5. NEXIUM [Concomitant]
     Indication: DYSPEPSIA
  6. LORAZEPAM [Concomitant]
     Indication: INSOMNIA
  7. PENTASA [Concomitant]
     Indication: CROHN'S DISEASE

REACTIONS (6)
  - ABDOMINAL PAIN [None]
  - FUNGAL INFECTION [None]
  - ABDOMINAL ABSCESS [None]
  - WHITE BLOOD CELL COUNT INCREASED [None]
  - GASTROINTESTINAL INFLAMMATION [None]
  - GASTROINTESTINAL INFECTION [None]
